FAERS Safety Report 9412250 (Version 1)
Quarter: 2013Q3

REPORT INFORMATION
  Report Type: Report from Study
  Country: US (occurrence: US)
  Receive Date: 20130722
  Receipt Date: 20130722
  Transmission Date: 20140515
  Serious: Yes (Hospitalization, Other)
  Sender: FDA-Public Use
  Company Number: US-ELI_LILLY_AND_COMPANY-US201307004897

PATIENT
  Age: 53 Year
  Sex: Female

DRUGS (7)
  1. DULOXETINE HYDROCHLORIDE [Suspect]
     Indication: DEPRESSION
     Dosage: 120 MG, QD
     Dates: end: 201305
  2. DULOXETINE HYDROCHLORIDE [Suspect]
     Indication: FIBROMYALGIA
  3. DULOXETINE HYDROCHLORIDE [Suspect]
     Indication: BIPOLAR DISORDER
  4. DILAUDID [Suspect]
     Dosage: UNK
  5. ABILIFY [Concomitant]
     Dosage: 20 MG, QD
  6. LAMICTAL [Concomitant]
  7. SEROQUEL [Concomitant]

REACTIONS (7)
  - Ankylosing spondylitis [Not Recovered/Not Resolved]
  - Suicidal ideation [Unknown]
  - Mood swings [Unknown]
  - Abnormal behaviour [Unknown]
  - Intentional drug misuse [Unknown]
  - Drug withdrawal syndrome [Unknown]
  - Overdose [Recovering/Resolving]
